FAERS Safety Report 15589036 (Version 1)
Quarter: 2018Q4

REPORT INFORMATION
  Report Type: Spontaneous
  Country: IN (occurrence: IN)
  Receive Date: 20181106
  Receipt Date: 20181106
  Transmission Date: 20190205
  Serious: Yes (Disabling, Other)
  Sender: FDA-Public Use
  Company Number: IN-MACLEODS PHARMACEUTICALS US LTD-MAC2018018527

PATIENT

DRUGS (1)
  1. TRIAMCINOLONE ACETONIDE. [Suspect]
     Active Substance: TRIAMCINOLONE ACETONIDE
     Indication: JOINT ANKYLOSIS
     Dosage: UNK
     Route: 065

REACTIONS (4)
  - Retinal ischaemia [Unknown]
  - Incorrect route of product administration [Unknown]
  - Embolism [Unknown]
  - Retinal artery occlusion [Not Recovered/Not Resolved]
